FAERS Safety Report 7730479-9 (Version None)
Quarter: 2011Q3

REPORT INFORMATION
  Report Type: 
  Country: None (occurrence: None)
  Receive Date: 20110901
  Receipt Date: 20110901
  Transmission Date: 20111222
  Serious: Yes (Disabling)
  Sender: FDA-Public Use
  Company Number: None

PATIENT
  Age: 54 Year
  Sex: Female
  Weight: 63.5036 kg

DRUGS (1)
  1. HYDROCODONE BITARTRATE + ACETAMINOPHEN [Suspect]
     Indication: PAIN
     Dosage: 5-500 TAB 1-2 3X DAY
     Dates: start: 20110725

REACTIONS (8)
  - HICCUPS [None]
  - DIZZINESS [None]
  - NAUSEA [None]
  - VOMITING [None]
  - VISION BLURRED [None]
  - EYE DISORDER [None]
  - FATIGUE [None]
  - PRURITUS [None]
